FAERS Safety Report 8452374-2 (Version None)
Quarter: 2012Q2

REPORT INFORMATION
  Report Type: 
  Country: None (occurrence: None)
  Receive Date: 20120620
  Receipt Date: 20120419
  Transmission Date: 20120825
  Serious: No
  Sender: FDA-Public Use
  Company Number: US-VERTEX PHARMACEUTICALS INC.-AE-2012-005068

PATIENT
  Sex: Male
  Weight: 81.266 kg

DRUGS (3)
  1. PEGASYS [Concomitant]
     Indication: HEPATITIS C
     Route: 058
     Dates: start: 20120408
  2. RIBAVIRIN [Concomitant]
     Indication: HEPATITIS C
     Route: 048
     Dates: start: 20120408
  3. INCIVEK [Suspect]
     Indication: HEPATITIS C
     Route: 048
     Dates: start: 20120408

REACTIONS (7)
  - ANORECTAL DISCOMFORT [None]
  - INCORRECT DRUG ADMINISTRATION DURATION [None]
  - DIARRHOEA [None]
  - SOMNOLENCE [None]
  - FATIGUE [None]
  - CHILLS [None]
  - ANAL PRURITUS [None]
